FAERS Safety Report 25087274 (Version 1)
Quarter: 2025Q1

REPORT INFORMATION
  Report Type: Spontaneous
  Country: US (occurrence: None)
  Receive Date: 20250318
  Receipt Date: 20250318
  Transmission Date: 20250409
  Serious: Yes (Death, Life-Threatening, Hospitalization)
  Sender: HARMAN FINOCHEM
  Company Number: US-Harman-000089

PATIENT
  Age: 21 Year
  Sex: Female

DRUGS (5)
  1. METFORMIN [Suspect]
     Active Substance: METFORMIN HYDROCHLORIDE
     Indication: Product used for unknown indication
  2. ALCOHOL [Concomitant]
     Active Substance: ALCOHOL
  3. CAFFEINE [Concomitant]
     Active Substance: CAFFEINE
  4. ACETAMINOPHEN [Concomitant]
     Active Substance: ACETAMINOPHEN
  5. DIPHENHYDRAMINE [Concomitant]
     Active Substance: DIPHENHYDRAMINE

REACTIONS (7)
  - Hypothermia [Unknown]
  - Cardiac arrest [Fatal]
  - Distributive shock [Fatal]
  - Hypoglycaemia [Unknown]
  - Acidosis [Fatal]
  - Intentional overdose [Unknown]
  - Electrocardiogram QT prolonged [Unknown]
